FAERS Safety Report 19978861 (Version 1)
Quarter: 2021Q4

REPORT INFORMATION
  Report Type: Spontaneous
  Country: US (occurrence: US)
  Receive Date: 20211020
  Receipt Date: 20211020
  Transmission Date: 20220303
  Serious: Yes (Hospitalization)
  Sender: FDA-Public Use
  Company Number: None

PATIENT
  Age: 40 Year
  Sex: Male

DRUGS (1)
  1. HUMIRA [Suspect]
     Active Substance: ADALIMUMAB
     Indication: Ankylosing spondylitis
     Dosage: ?          OTHER DOSE:1 PEN;
     Route: 058
     Dates: start: 20180130

REACTIONS (3)
  - Soft tissue infection [None]
  - Therapy interrupted [None]
  - Localised infection [None]

NARRATIVE: CASE EVENT DATE: 20210924
